FAERS Safety Report 12079665 (Version 2)
Quarter: 2016Q2

REPORT INFORMATION
  Report Type: Spontaneous
  Country: US (occurrence: US)
  Receive Date: 20160216
  Receipt Date: 20160426
  Transmission Date: 20160815
  Serious: No
  Sender: FDA-Public Use
  Company Number: US-PFIZER INC-2016090207

PATIENT
  Age: 68 Year
  Sex: Male
  Weight: 73 kg

DRUGS (7)
  1. LEVOTHYROXINE. [Concomitant]
     Active Substance: LEVOTHYROXINE
     Indication: THYROID DISORDER
     Dosage: 0.125 UG, 1X/DAY
     Dates: start: 1970
  2. ALEGRA [Concomitant]
     Dosage: UNK [24 HR]
  3. VFEND [Suspect]
     Active Substance: VORICONAZOLE
     Indication: COCCIDIOIDOMYCOSIS
     Dosage: 200 MG, 2X/DAY
     Route: 048
     Dates: start: 2013
  4. METOPROLOL. [Concomitant]
     Active Substance: METOPROLOL
     Indication: HEART RATE ABNORMAL
     Dosage: 50 MG, 1X/DAY
     Dates: start: 2010
  5. ACETAMINOPHEN. [Concomitant]
     Active Substance: ACETAMINOPHEN
     Indication: PAIN
     Dosage: 500 MG, 1-2 A DAY
  6. ACETAMINOPHEN. [Concomitant]
     Active Substance: ACETAMINOPHEN
     Indication: MYALGIA
  7. FLONASE [Concomitant]
     Active Substance: FLUTICASONE PROPIONATE
     Dosage: UNK

REACTIONS (3)
  - Intervertebral disc protrusion [Recovered/Resolved]
  - Chromatopsia [Not Recovered/Not Resolved]
  - Drug ineffective for unapproved indication [Not Recovered/Not Resolved]

NARRATIVE: CASE EVENT DATE: 2013
